FAERS Safety Report 17180877 (Version 11)
Quarter: 2022Q1

REPORT INFORMATION
  Report Type: Report from Study
  Country: JP (occurrence: JP)
  Receive Date: 20191219
  Receipt Date: 20220114
  Transmission Date: 20220423
  Serious: Yes (Hospitalization)
  Sender: FDA-Public Use
  Company Number: JP-ALNYLAM PHARMACEUTICALS, INC.-ALN-2019-000826

PATIENT

DRUGS (28)
  1. ONPATTRO [Suspect]
     Active Substance: PATISIRAN SODIUM
     Indication: Hereditary neuropathic amyloidosis
     Dosage: 16.5 MILLIGRAM
     Route: 041
     Dates: start: 20190913, end: 20190913
  2. ONPATTRO [Suspect]
     Active Substance: PATISIRAN SODIUM
     Dosage: 15.0 MILLIGRAM
     Route: 041
     Dates: start: 20191004, end: 20200923
  3. VYNDAQEL [Concomitant]
     Active Substance: TAFAMIDIS MEGLUMINE
     Indication: Hereditary neuropathic amyloidosis
     Dosage: UNK
     Route: 065
     Dates: start: 201408, end: 201910
  4. GASTER [Concomitant]
     Active Substance: FAMOTIDINE
     Indication: Prophylaxis
     Dosage: 20 MILLIGRAM, SINGLE
     Route: 065
     Dates: start: 20190913, end: 20190913
  5. POLARAMINE [Concomitant]
     Active Substance: DEXCHLORPHENIRAMINE MALEATE
     Indication: Prophylaxis
     Dosage: 5 MILLIGRAM, SINGLE
     Route: 065
     Dates: start: 20190913
  6. DEXAMETHASONE SODIUM PHOSPHATE [Concomitant]
     Active Substance: DEXAMETHASONE SODIUM PHOSPHATE
     Indication: Prophylaxis
     Dosage: 10 MILLIGRAM, SINGLE
     Route: 065
     Dates: start: 20190913, end: 20190913
  7. DEXAMETHASONE SODIUM PHOSPHATE [Concomitant]
     Active Substance: DEXAMETHASONE SODIUM PHOSPHATE
     Dosage: 9.9 MILLIGRAM, SINGLE
     Route: 065
  8. ACETAMINOPHEN [Concomitant]
     Active Substance: ACETAMINOPHEN
     Indication: Prophylaxis
     Dosage: 500 MILLIGRAM, SINGLE
     Route: 065
     Dates: start: 20190913, end: 20190913
  9. FAMOTIDINE [Concomitant]
     Active Substance: FAMOTIDINE
     Indication: Prophylaxis
     Dosage: 20 MILLIGRAM, SINGLE
     Route: 065
  10. VITAMINS [Concomitant]
     Active Substance: VITAMINS
     Indication: Prophylaxis
     Dosage: 1 GRAM, QD
     Route: 048
     Dates: start: 20190913
  11. MOSAPRIDE CITRATE [Concomitant]
     Active Substance: MOSAPRIDE CITRATE
     Indication: Hereditary neuropathic amyloidosis
     Dosage: 1 DOSAGE FORM, TID
     Route: 048
  12. MIDODRINE HYDROCHLORIDE [Concomitant]
     Active Substance: MIDODRINE HYDROCHLORIDE
     Indication: Hereditary neuropathic amyloidosis
     Dosage: 1 DOSAGE FORM, BID
     Route: 048
  13. AMITIZA [Concomitant]
     Active Substance: LUBIPROSTONE
     Indication: Hereditary neuropathic amyloidosis
     Dosage: 1 DOSAGE FORM, BID
     Route: 048
  14. MAGNESIUM OXIDE [Concomitant]
     Active Substance: MAGNESIUM OXIDE
     Indication: Hereditary neuropathic amyloidosis
     Dosage: 4 DOSAGE FORM, QD
     Route: 048
  15. ZOLPIDEM TARTRATE [Concomitant]
     Active Substance: ZOLPIDEM TARTRATE
     Indication: Insomnia
     Dosage: 1 DOSAGE FORM, QD
     Route: 048
  16. BELSOMRA [Concomitant]
     Active Substance: SUVOREXANT
     Indication: Hereditary neuropathic amyloidosis
     Dosage: 1 DOSAGE FORM, SINGLE
     Route: 048
  17. BELSOMRA [Concomitant]
     Active Substance: SUVOREXANT
     Indication: Insomnia
  18. LOFLAZEPATE D^ETHYLE [Concomitant]
     Indication: Hereditary neuropathic amyloidosis
     Dosage: 2 DOSAGE FORM, QD
     Route: 048
  19. LORAZEPAM TOWA [Concomitant]
     Indication: Hereditary neuropathic amyloidosis
     Dosage: 1 DOSAGE FORM, TID
     Route: 048
  20. SODIUM PICOSULFATE [Concomitant]
     Active Substance: SODIUM PICOSULFATE
     Indication: Hereditary neuropathic amyloidosis
     Dosage: 25 DROP, SINGLE
     Route: 048
  21. DROXIDOPA [Concomitant]
     Active Substance: DROXIDOPA
     Indication: Hereditary neuropathic amyloidosis
     Dosage: 200 MILLIGRAM, QD
     Route: 065
  22. ETHYL LOFLAZEPATE [Concomitant]
     Active Substance: ETHYL LOFLAZEPATE
     Indication: Hereditary neuropathic amyloidosis
     Dosage: 1 MILLIGRAM, BID
     Route: 065
  23. METHYLCOBALAMIN [Concomitant]
     Active Substance: METHYLCOBALAMIN
     Indication: Prophylaxis
     Dosage: 500 MICROGRAM, TID
     Route: 065
  24. PRIMPERAN [Concomitant]
     Active Substance: METOCLOPRAMIDE HYDROCHLORIDE
     Indication: Nausea
     Dosage: 5 MILLIGRAM, TID
     Route: 065
  25. PRIMPERAN [Concomitant]
     Active Substance: METOCLOPRAMIDE HYDROCHLORIDE
     Indication: Vomiting
  26. ELOBIXIBAT [Concomitant]
     Active Substance: ELOBIXIBAT
     Indication: Hereditary neuropathic amyloidosis
     Dosage: 5 MILLIGRAM, BID
     Route: 065
  27. DIMETHICONE [Concomitant]
     Active Substance: DIMETHICONE
     Indication: Abdominal distension
     Dosage: 40 MILLIGRAM, TID
     Route: 065
  28. NAUZELIN [Concomitant]
     Active Substance: DOMPERIDONE
     Indication: Hereditary neuropathic amyloidosis
     Dosage: 30 MILLIGRAM, PRN
     Route: 065

REACTIONS (4)
  - Vomiting [Recovering/Resolving]
  - Nausea [Unknown]
  - Inappropriate schedule of product administration [Unknown]
  - No adverse event [Unknown]

NARRATIVE: CASE EVENT DATE: 20191024
